FAERS Safety Report 12374720 (Version 6)
Quarter: 2017Q3

REPORT INFORMATION
  Report Type: Spontaneous
  Country: US (occurrence: US)
  Receive Date: 20160517
  Receipt Date: 20170726
  Transmission Date: 20171127
  Serious: No
  Sender: FDA-Public Use
  Company Number: US-PFIZER INC-2016236615

PATIENT
  Age: 53 Year
  Sex: Male
  Weight: 120.2 kg

DRUGS (4)
  1. LYRICA [Suspect]
     Active Substance: PREGABALIN
     Indication: PHANTOM PAIN
  2. OXYCODONE [Suspect]
     Active Substance: OXYCODONE
     Indication: NEURALGIA
     Dosage: 30 MG, UNK
     Dates: start: 2017
  3. OXYCODONE [Suspect]
     Active Substance: OXYCODONE
     Indication: PHANTOM PAIN
  4. LYRICA [Suspect]
     Active Substance: PREGABALIN
     Indication: NEURALGIA
     Dosage: 150 MG, 2X/DAY
     Route: 048
     Dates: start: 20160225

REACTIONS (6)
  - Drug effect incomplete [Unknown]
  - Increased appetite [Unknown]
  - Insomnia [Unknown]
  - Weight increased [Unknown]
  - Pain [Unknown]
  - Peripheral swelling [Unknown]
